FAERS Safety Report 5375092-6 (Version None)
Quarter: 2007Q2

REPORT INFORMATION
  Report Type: 
  Country: None (occurrence: None)
  Receive Date: 20070629
  Receipt Date: 20060508
  Transmission Date: 20071010
  Serious: Yes (Other)
  Sender: FDA-Public Use
  Company Number: US-ASTRAZENECA-2006UW09379

PATIENT
  Age: 17207 Day
  Sex: Female
  Weight: 71.3 kg

DRUGS (2)
  1. TAMOXIFEN CITRATE [Suspect]
     Indication: BREAST CANCER
     Route: 048
     Dates: start: 20040209, end: 20060316
  2. TRIPTORELIN [Suspect]
     Indication: BREAST CANCER
     Route: 058
     Dates: start: 20040209, end: 20060310

REACTIONS (2)
  - ENDOMETRIAL HYPERPLASIA [None]
  - ENDOMETRIAL HYPERTROPHY [None]
